FAERS Safety Report 4997829-8 (Version None)
Quarter: 2006Q2

REPORT INFORMATION
  Report Type: 
  Country: None (occurrence: None)
  Receive Date: 20060508
  Receipt Date: 20060428
  Transmission Date: 20061013
  Serious: Yes (Hospitalization)
  Sender: FDA-Public Use
  Company Number: 2006BI006284

PATIENT
  Age: 32 Year
  Sex: Female
  Weight: 136.0791 kg

DRUGS (3)
  1. AVONEX [Suspect]
     Indication: MULTIPLE SCLEROSIS
     Dosage: 30 UG; QW; IM
     Route: 030
     Dates: start: 20031001
  2. AMANTADINE HCL [Concomitant]
  3. AMITRIPTYLINE HCL [Concomitant]

REACTIONS (2)
  - GASTRITIS [None]
  - MULTIPLE SCLEROSIS RELAPSE [None]
